FAERS Safety Report 9349814 (Version 2)
Quarter: 2013Q2

REPORT INFORMATION
  Report Type: Spontaneous
  Country: DE (occurrence: DE)
  Receive Date: 20130614
  Receipt Date: 20130618
  Transmission Date: 20140414
  Serious: Yes (Death, Hospitalization, Other)
  Sender: FDA-Public Use
  Company Number: DE-ABBOTT-13P-062-1102068-00

PATIENT
  Age: 60 Year
  Sex: Male

DRUGS (1)
  1. HUMIRA [Suspect]
     Indication: CROHN^S DISEASE
     Route: 058
     Dates: start: 20100923, end: 20110519

REACTIONS (7)
  - Pyrexia [Fatal]
  - Viral infection [Fatal]
  - Ileus [Unknown]
  - Gastrointestinal inflammation [Unknown]
  - Tracheostomy [Unknown]
  - Renal failure [Unknown]
  - Weight decreased [Unknown]
